FAERS Safety Report 16116315 (Version 3)
Quarter: 2025Q3

REPORT INFORMATION
  Report Type: Spontaneous
  Country: EU (occurrence: EU)
  Receive Date: 20190326
  Receipt Date: 20250721
  Transmission Date: 20251020
  Serious: Yes (Other)
  Sender: AUROBINDO
  Company Number: EU-AUROBINDO-AUR-APL-2019-015159

PATIENT
  Age: 67 Year
  Sex: Male

DRUGS (9)
  1. VALGANCICLOVIR [Suspect]
     Active Substance: VALGANCICLOVIR
     Indication: Cytomegalovirus infection
     Dosage: 900 MILLIGRAM, TWO TIMES A DAY (900 MG, BID)
     Route: 048
  2. VALGANCICLOVIR [Suspect]
     Active Substance: VALGANCICLOVIR
     Indication: Antiviral prophylaxis
     Dosage: 1800 MILLIGRAM, ONCE A DAY (QD)
     Route: 065
  3. VALGANCICLOVIR [Suspect]
     Active Substance: VALGANCICLOVIR
     Indication: Prophylaxis
  4. EVEROLIMUS [Suspect]
     Active Substance: EVEROLIMUS
     Indication: Product used for unknown indication
     Dosage: 20 MILLIGRAM/KILOGRAM, ONCE A DAY (QD)
     Route: 065
  5. GANCICLOVIR [Suspect]
     Active Substance: GANCICLOVIR
     Indication: Cytomegalovirus infection
     Dosage: 20 MILLIGRAM/KILOGRAM, ONCE A DAY
     Route: 065
  6. GANCICLOVIR [Suspect]
     Active Substance: GANCICLOVIR
     Dosage: 5 MILLIGRAM/KILOGRAM, TWO TIMES A DAY
     Route: 065
  7. GANCICLOVIR [Suspect]
     Active Substance: GANCICLOVIR
     Dosage: 10 MILLIGRAM/KILOGRAM, ONCE A DAY (QD)
     Route: 065
  8. FOSCARNET SODIUM [Suspect]
     Active Substance: FOSCARNET SODIUM
     Indication: Prophylaxis
     Dosage: 120 MILLIGRAM/KILOGRAM, ONCE A DAY (QD)
     Route: 065
  9. FOSCARNET SODIUM [Suspect]
     Active Substance: FOSCARNET SODIUM
     Indication: Cytomegalovirus infection
     Dosage: 240 MILLIGRAM/KILOGRAM, ONCE A DAY (QD)
     Route: 065

REACTIONS (6)
  - Cytomegalovirus infection [Unknown]
  - Treatment failure [Unknown]
  - Off label use [Unknown]
  - Haematuria [Unknown]
  - Renal tubular disorder [Unknown]
  - Drug resistance [Unknown]

NARRATIVE: CASE EVENT DATE: 20170101
